FAERS Safety Report 5010496-2 (Version None)
Quarter: 2006Q2

REPORT INFORMATION
  Report Type: 
  Country: None (occurrence: None)
  Receive Date: 20060525
  Receipt Date: 20051103
  Transmission Date: 20061013
  Serious: No
  Sender: FDA-Public Use
  Company Number: US-GLAXOSMITHKLINE-A0580791A

PATIENT
  Sex: Female

DRUGS (1)
  1. BACTROBAN [Suspect]

REACTIONS (1)
  - FUNGAL INFECTION [None]
